FAERS Safety Report 25554278 (Version 1)
Quarter: 2025Q3

REPORT INFORMATION
  Report Type: Spontaneous
  Country: US (occurrence: None)
  Receive Date: 20250714
  Receipt Date: 20250714
  Transmission Date: 20251021
  Serious: No
  Sender: FDA-CTU
  Company Number: None

PATIENT
  Age: 68 Year
  Sex: Female

DRUGS (6)
  1. CYMBALTA [Suspect]
     Active Substance: DULOXETINE HYDROCHLORIDE
     Indication: Depression
  2. ARMOUR THYROID [Concomitant]
     Active Substance: THYROID, PORCINE
  3. Methylated B-12 [Concomitant]
  4. OMEGA 3 [Concomitant]
     Active Substance: CAPSAICIN
  5. BIOTIN [Concomitant]
     Active Substance: BIOTIN
  6. MAGNESIUM GLYCINATE [Concomitant]
     Active Substance: MAGNESIUM GLYCINATE

REACTIONS (15)
  - Nausea [None]
  - Dizziness [None]
  - Decreased appetite [None]
  - Withdrawal syndrome [None]
  - Palpitations [None]
  - Hyperhidrosis [None]
  - Crying [None]
  - Insomnia [None]
  - Fear [None]
  - Photosensitivity reaction [None]
  - Hyperacusis [None]
  - Eye disorder [None]
  - Tooth disorder [None]
  - Fatigue [None]
  - Hypoaesthesia [None]

NARRATIVE: CASE EVENT DATE: 20200303
